FAERS Safety Report 5104511-5 (Version None)
Quarter: 2006Q3

REPORT INFORMATION
  Report Type: 
  Country: None (occurrence: None)
  Receive Date: 20060914
  Receipt Date: 20060905
  Transmission Date: 20061208
  Serious: Yes (Death, Hospitalization)
  Sender: FDA-Public Use
  Company Number: US-JNJFOC-20060902195

PATIENT
  Age: 50 Year
  Sex: Female

DRUGS (3)
  1. ACETAMINOPHEN/DIPHENHYDRAMINE [Suspect]
     Indication: SUICIDE ATTEMPT
     Route: 048
  2. DIPHENHYDRAMINE HCL [Suspect]
     Indication: SUICIDE ATTEMPT
     Route: 048
  3. SERTRALINE [Suspect]
     Indication: SUICIDE ATTEMPT
     Route: 048

REACTIONS (4)
  - CARDIO-RESPIRATORY ARREST [None]
  - COMPLETED SUICIDE [None]
  - DRUG TOXICITY [None]
  - HEPATIC FUNCTION ABNORMAL [None]
